FAERS Safety Report 7982183-X (Version None)
Quarter: 2011Q4

REPORT INFORMATION
  Report Type: 
  Country: None (occurrence: None)
  Receive Date: 20111212
  Receipt Date: 20111129
  Transmission Date: 20120403
  Serious: Yes (Hospitalization, Other)
  Sender: FDA-Public Use
  Company Number: 2011MA016968

PATIENT
  Sex: Female
  Weight: 58.9676 kg

DRUGS (1)
  1. DIGOXIN [Suspect]
     Indication: PRODUCT USED FOR UNKNOWN INDICATION
     Dosage: 0.125 MG;QD;PO
     Route: 048
     Dates: start: 20070110, end: 20080719

REACTIONS (13)
  - DEPRESSION [None]
  - ECONOMIC PROBLEM [None]
  - CONVULSION [None]
  - DYSPNOEA [None]
  - PAIN [None]
  - UNEVALUABLE EVENT [None]
  - ASTHENIA [None]
  - CEREBROVASCULAR ACCIDENT [None]
  - ANXIETY [None]
  - HEART RATE INCREASED [None]
  - DIARRHOEA [None]
  - CARDIAC DISORDER [None]
  - MULTIPLE INJURIES [None]
